FAERS Safety Report 11788094 (Version 2)
Quarter: 2015Q4

REPORT INFORMATION
  Report Type: Spontaneous
  Country: HU (occurrence: HU)
  Receive Date: 20151130
  Receipt Date: 20151224
  Transmission Date: 20160305
  Serious: Yes (Other)
  Sender: FDA-Public Use
  Company Number: HU-AMGEN-HUNSP2015126498

PATIENT
  Age: 21 Year
  Sex: Female
  Weight: 61 kg

DRUGS (5)
  1. PANTOPRAZOL KRKA [Concomitant]
     Indication: PROPHYLAXIS
     Dosage: 20 MG, AS NEEDED
     Dates: start: 201408
  2. TREXAN                             /00113801/ [Concomitant]
     Active Substance: METHOTREXATE SODIUM
     Indication: RHEUMATOID ARTHRITIS
     Dosage: 20 MG, WEEKLY 1X, (2.5 MG TABLETS)
     Dates: start: 201412
  3. LETROX [Concomitant]
     Indication: THYROID DISORDER
     Dosage: 50 UG, 1 IN THE MORNING, STARTED 2 YEARS AGO
  4. ENBREL [Suspect]
     Active Substance: ETANERCEPT
     Indication: RHEUMATOID ARTHRITIS
     Dosage: WEEKLY, 1X
     Route: 065
     Dates: start: 201504
  5. TREXAN                             /00113801/ [Concomitant]
     Active Substance: METHOTREXATE SODIUM
     Indication: RHEUMATOID ARTHRITIS
     Dosage: 20 MG, WEEKLY 1X, (2.5 MG TABLETS)
     Dates: start: 201412

REACTIONS (2)
  - Nasopharyngitis [Unknown]
  - Pyelonephritis [Not Recovered/Not Resolved]
